FAERS Safety Report 7983665-7 (Version None)
Quarter: 2011Q4

REPORT INFORMATION
  Report Type: 
  Country: None (occurrence: None)
  Receive Date: 20111215
  Receipt Date: 20111206
  Transmission Date: 20120403
  Serious: Yes (Hospitalization, Other)
  Sender: FDA-Public Use
  Company Number: US-ASTRAZENECA-2011SE32414

PATIENT
  Age: 57 Year
  Sex: Male

DRUGS (3)
  1. CRESTOR [Suspect]
     Route: 048
  2. INSULIN [Concomitant]
  3. NEXIUM [Suspect]
     Route: 048

REACTIONS (7)
  - LIMB DISCOMFORT [None]
  - BLOOD CHOLESTEROL INCREASED [None]
  - PAIN [None]
  - LIMB INJURY [None]
  - WRIST FRACTURE [None]
  - OSTEOPOROSIS [None]
  - DIABETES MELLITUS [None]
